FAERS Safety Report 8271267-7 (Version None)
Quarter: 2012Q2

REPORT INFORMATION
  Report Type: 
  Country: None (occurrence: None)
  Receive Date: 20120406
  Receipt Date: 20120326
  Transmission Date: 20120825
  Serious: Yes (Death)
  Sender: FDA-Public Use
  Company Number: JP-2012-14688

PATIENT
  Age: 83 Year
  Sex: Male

DRUGS (1)
  1. PLETAL [Suspect]
     Dosage: ORAL
     Route: 048
     Dates: start: 20081101, end: 20090101

REACTIONS (1)
  - INTERSTITIAL LUNG DISEASE [None]
